FAERS Safety Report 7500670-5 (Version None)
Quarter: 2011Q2

REPORT INFORMATION
  Report Type: 
  Country: None (occurrence: None)
  Receive Date: 20110524
  Receipt Date: 20110513
  Transmission Date: 20111010
  Serious: Yes (Hospitalization, Disabling, Other)
  Sender: FDA-Public Use
  Company Number: US-MERCK-1012USA02525

PATIENT
  Age: 75 Year
  Sex: Female
  Weight: 52 kg

DRUGS (3)
  1. FOSAMAX [Suspect]
     Route: 065
     Dates: start: 20080226, end: 20081207
  2. FOSAMAX [Suspect]
     Indication: OSTEOPOROSIS
     Route: 048
     Dates: start: 19990101
  3. ZOLOFT [Concomitant]
     Indication: DEPRESSION
     Route: 065
     Dates: start: 19960101

REACTIONS (48)
  - ANXIETY [None]
  - HEADACHE [None]
  - EPISTAXIS [None]
  - POLLAKIURIA [None]
  - HEART RATE DECREASED [None]
  - PNEUMONIA [None]
  - PAIN IN EXTREMITY [None]
  - DIVERTICULUM [None]
  - DRY EYE [None]
  - FALL [None]
  - MEMORY IMPAIRMENT [None]
  - CATARACT [None]
  - WHEEZING [None]
  - MAJOR DEPRESSION [None]
  - DENTAL CARIES [None]
  - CARDIAC MURMUR [None]
  - BLOOD LACTATE DEHYDROGENASE INCREASED [None]
  - VARICOSE VEIN [None]
  - OSTEOPOROSIS [None]
  - BREAST CANCER [None]
  - HORMONE LEVEL ABNORMAL [None]
  - ALOPECIA [None]
  - SINUSITIS [None]
  - PERIPHERAL VASCULAR DISORDER [None]
  - OSTEOPENIA [None]
  - RHINITIS [None]
  - BREAST DISORDER [None]
  - ARTERIOSCLEROSIS [None]
  - FEMUR FRACTURE [None]
  - LOW TURNOVER OSTEOPATHY [None]
  - MYOCARDIAL INFARCTION [None]
  - ASTHMA [None]
  - HAIR DISORDER [None]
  - URINARY INCONTINENCE [None]
  - POLYP COLORECTAL [None]
  - MYALGIA [None]
  - DYSPNOEA [None]
  - OEDEMA PERIPHERAL [None]
  - PEDAL PULSE DECREASED [None]
  - NASAL SEPTUM DISORDER [None]
  - MITRAL VALVE DISEASE [None]
  - MULTIPLE FRACTURES [None]
  - CAROTID ARTERY STENOSIS [None]
  - DYSPHONIA [None]
  - VEIN PAIN [None]
  - CAROTID BRUIT [None]
  - BRONCHITIS [None]
  - BODY HEIGHT DECREASED [None]
